FAERS Safety Report 23776982 (Version 1)
Quarter: 2024Q2

REPORT INFORMATION
  Report Type: Spontaneous
  Country: US (occurrence: US)
  Receive Date: 20240424
  Receipt Date: 20240424
  Transmission Date: 20240716
  Serious: Yes (Hospitalization)
  Sender: FDA-Public Use
  Company Number: US-AMAROX PHARMA-HET2024US01163

PATIENT
  Age: 49 Year
  Sex: Female

DRUGS (2)
  1. PANTOPRAZOLE [Suspect]
     Active Substance: PANTOPRAZOLE
     Indication: Symptomatic treatment
     Dosage: UNK
     Route: 065
  2. SUCRALFATE [Suspect]
     Active Substance: SUCRALFATE
     Indication: Symptomatic treatment
     Dosage: UNK
     Route: 065

REACTIONS (1)
  - Malabsorption [Unknown]
